FAERS Safety Report 11148448 (Version 1)
Quarter: 2015Q2

REPORT INFORMATION
  Report Type: Spontaneous
  Country: CH (occurrence: TR)
  Receive Date: 20150529
  Receipt Date: 20150529
  Transmission Date: 20150821
  Serious: Yes (Other)
  Sender: FDA-Public Use
  Company Number: CH-LPDUSPRD-20150364

PATIENT
  Age: 20 Year
  Sex: Female
  Weight: 65 kg

DRUGS (1)
  1. VENOFER [Suspect]
     Active Substance: IRON SUCROSE
     Dosage: DAILY DOSE OF 1X2
     Route: 042
     Dates: start: 20150401

REACTIONS (4)
  - Nausea [Unknown]
  - Erythema [Unknown]
  - Pruritus generalised [Unknown]
  - Back pain [Unknown]

NARRATIVE: CASE EVENT DATE: 20150401
